FAERS Safety Report 19289102 (Version 2)
Quarter: 2021Q2

REPORT INFORMATION
  Report Type: Spontaneous
  Country: US (occurrence: US)
  Receive Date: 20210521
  Receipt Date: 20210618
  Transmission Date: 20210717
  Serious: Yes (Hospitalization, Other)
  Sender: FDA-Public Use
  Company Number: US-JNJFOC-A-NJ2020-203981

PATIENT
  Age: 76 Year
  Sex: Female

DRUGS (23)
  1. DILTIAZEM. [Concomitant]
     Active Substance: DILTIAZEM
     Dosage: 300 MG, QAM
  2. SPIRONOLACTONE. [Concomitant]
     Active Substance: SPIRONOLACTONE
     Dosage: 25 MG, QAM
  3. MIRAPEX [Concomitant]
     Active Substance: PRAMIPEXOLE DIHYDROCHLORIDE
     Dosage: 0.5 MG, QPM
  4. OMEGA3 JACK [Concomitant]
     Dosage: 1000 MG, TID
  5. SINGULAIR [Concomitant]
     Active Substance: MONTELUKAST SODIUM
     Dosage: 10 MG, QD
  6. CLONAZEPAM. [Concomitant]
     Active Substance: CLONAZEPAM
  7. CALCIUM CITRATE [Concomitant]
     Active Substance: CALCIUM CITRATE
     Dosage: 1000 MG, BID
  8. PRAVASTATIN. [Concomitant]
     Active Substance: PRAVASTATIN
     Dosage: 20 MG, QPM
  9. OXYGEN. [Concomitant]
     Active Substance: OXYGEN
  10. LANTISEPTIC CALDAZINC OINTMENT [Concomitant]
     Dosage: 15 U, QPM
  11. HUMALOG [Concomitant]
     Active Substance: INSULIN LISPRO
     Dosage: 15 U, PRN
  12. OPSUMIT [Suspect]
     Active Substance: MACITENTAN
     Indication: PULMONARY ARTERIAL HYPERTENSION
     Dosage: 10 MG, QD
     Route: 048
     Dates: start: 202002
  13. OPSUMIT [Suspect]
     Active Substance: MACITENTAN
     Route: 048
     Dates: start: 202001
  14. ADVAIR HFA [Concomitant]
     Active Substance: FLUTICASONE PROPIONATE\SALMETEROL XINAFOATE
     Dosage: 500/50 1 PUFF, BID
     Route: 055
  15. OXYGEN. [Concomitant]
     Active Substance: OXYGEN
     Dosage: 2 L
     Route: 045
  16. METFORMIN [Concomitant]
     Active Substance: METFORMIN HYDROCHLORIDE
     Dosage: 1000 MG, BID
  17. WARFARIN [Concomitant]
     Active Substance: WARFARIN
     Dosage: 3 MG
  18. ALBUTEROL HFA [Concomitant]
     Active Substance: ALBUTEROL SULFATE
     Dosage: UNK, PRN
  19. ATENOLOL. [Concomitant]
     Active Substance: ATENOLOL
     Dosage: 12.5 MG, QAM
  20. VITAMIN B12 [Concomitant]
     Active Substance: CYANOCOBALAMIN
     Dosage: 1000 MCG, Q2WEEK
  21. CLARITIN?D NOS [Concomitant]
     Active Substance: LORATADINE\PSEUDOEPHEDRINE SULFATE
     Dosage: UNK, PRN
  22. TORSEMIDE. [Concomitant]
     Active Substance: TORSEMIDE
     Dosage: 60 MG, QAM; 40 MG QPM
  23. B COMPLEX B12 [Concomitant]
     Dosage: UNK, PRN

REACTIONS (18)
  - Oxygen saturation decreased [Unknown]
  - Dyspnoea exertional [Recovered/Resolved]
  - Tendon rupture [Unknown]
  - Weight increased [Not Recovered/Not Resolved]
  - Rotator cuff syndrome [Unknown]
  - Atrial fibrillation [Unknown]
  - Humerus fracture [Not Recovered/Not Resolved]
  - Cardiac failure congestive [Not Recovered/Not Resolved]
  - Hypoaesthesia [Not Recovered/Not Resolved]
  - Abnormal dreams [Recovering/Resolving]
  - Seizure [Unknown]
  - Balance disorder [Not Recovered/Not Resolved]
  - Fall [Recovering/Resolving]
  - Renal function test abnormal [Not Recovered/Not Resolved]
  - Blood electrolytes abnormal [Unknown]
  - Tremor [Unknown]
  - Fear of falling [Not Recovered/Not Resolved]
  - Sleep talking [Recovering/Resolving]

NARRATIVE: CASE EVENT DATE: 20200424
